FAERS Safety Report 4996530-4 (Version None)
Quarter: 2006Q2

REPORT INFORMATION
  Report Type: 
  Country: None (occurrence: None)
  Receive Date: 20060509
  Receipt Date: 20060202
  Transmission Date: 20061013
  Serious: Yes (Disabling)
  Sender: FDA-Public Use
  Company Number: PT-AMGEN-UK167645

PATIENT
  Sex: Female
  Weight: 62 kg

DRUGS (9)
  1. NEULASTA [Suspect]
     Indication: CHEMOTHERAPY
     Route: 058
     Dates: start: 20050806, end: 20060105
  2. NEUPOGEN [Suspect]
     Indication: NEUTROPENIA
     Route: 065
     Dates: start: 20050907, end: 20051206
  3. CYCLOPHOSPHAMIDE [Concomitant]
     Route: 065
     Dates: start: 20050805, end: 20060104
  4. DOXORUBICIN HCL [Concomitant]
     Route: 065
     Dates: start: 20050805, end: 20060104
  5. VINCRISTINE [Concomitant]
     Route: 065
     Dates: start: 20050805, end: 20060104
  6. PREDNISONE TAB [Concomitant]
     Route: 065
     Dates: start: 20050805, end: 20060104
  7. RITUXIMAB [Concomitant]
     Route: 065
     Dates: start: 20050919, end: 20060104
  8. ANAFRANIL [Concomitant]
     Route: 065
     Dates: start: 20030101
  9. INDERAL [Concomitant]
     Route: 065
     Dates: start: 20030101

REACTIONS (6)
  - BONE PAIN [None]
  - CANDIDIASIS [None]
  - HEADACHE [None]
  - HYPOTENSION [None]
  - STOMATITIS [None]
  - TREMOR [None]
